FAERS Safety Report 6088753-0 (Version None)
Quarter: 2009Q1

REPORT INFORMATION
  Report Type: 
  Country: None (occurrence: None)
  Receive Date: 20090219
  Receipt Date: 20090211
  Transmission Date: 20090719
  Serious: Yes (Other)
  Sender: FDA-Public Use
  Company Number: 2009AL000909

PATIENT
  Age: 85 Year
  Sex: Female

DRUGS (5)
  1. MELOXICAM [Suspect]
     Dosage: 7.5 MG PO
     Route: 048
     Dates: start: 20090109, end: 20090117
  2. QUININE [Concomitant]
  3. FUROSEMIDE [Concomitant]
  4. ZOPICLONE [Concomitant]
  5. VITAMIN TAB [Concomitant]

REACTIONS (4)
  - ERYTHEMA [None]
  - EYE PRURITUS [None]
  - PRURITUS [None]
  - SWELLING FACE [None]
